FAERS Safety Report 10096806 (Version 3)
Quarter: 2014Q2

REPORT INFORMATION
  Report Type: Spontaneous
  Country: JP (occurrence: JP)
  Receive Date: 20140422
  Receipt Date: 20140529
  Transmission Date: 20141212
  Serious: Yes (Life-Threatening, Other)
  Sender: FDA-Public Use
  Company Number: JP-TAKEDA-2014TJP005164

PATIENT
  Age: 73 Year
  Sex: Male
  Weight: 74.6 kg

DRUGS (10)
  1. ACTOS TABLETS 30 [Suspect]
     Indication: DIABETES MELLITUS
     Dosage: 15 MG, QD
     Route: 048
     Dates: start: 20060725, end: 200608
  2. ACTOS TABLETS 30 [Suspect]
     Dosage: 30 MG, QD
     Route: 048
     Dates: start: 200608, end: 20070213
  3. ACTOS TABLETS 30 [Suspect]
     Dosage: 30 MG, QD
     Route: 048
     Dates: start: 20070423, end: 20110728
  4. ACTOS TABLETS 30 [Suspect]
     Dosage: 30 MG, QD
     Route: 048
     Dates: start: 20111220, end: 20140205
  5. CRESTOR [Concomitant]
     Indication: HYPERCHOLESTEROLAEMIA
     Dosage: 2.5 MG, QD
     Route: 048
     Dates: start: 20080402
  6. METFORMIN HYDROCHLORIDE [Concomitant]
     Indication: DIABETES MELLITUS
     Dosage: UNK
     Route: 048
     Dates: start: 20060417
  7. TSUMURA DAIKENTYUTO [Concomitant]
     Dosage: UNK, PRN
     Route: 048
  8. MAGNESIUM OXIDE [Concomitant]
     Dosage: UNK UNK, PRN
     Route: 048
  9. SPIRIVA [Concomitant]
     Indication: CHRONIC OBSTRUCTIVE PULMONARY DISEASE
     Dosage: UNK
     Route: 050
     Dates: start: 20130803
  10. HOKUNALIN                          /00654901/ [Concomitant]
     Indication: CHRONIC OBSTRUCTIVE PULMONARY DISEASE
     Dosage: UNK
     Route: 062
     Dates: start: 20130803

REACTIONS (3)
  - Prostate cancer [Unknown]
  - Bladder cancer [Unknown]
  - Oedema [Unknown]
